FAERS Safety Report 7194533-5 (Version None)
Quarter: 2010Q4

REPORT INFORMATION
  Report Type: 
  Country: None (occurrence: None)
  Receive Date: 20101223
  Receipt Date: 20101214
  Transmission Date: 20110411
  Serious: Yes (Hospitalization)
  Sender: FDA-Public Use
  Company Number: US-WATSON-2010-16287

PATIENT
  Age: 72 Year
  Sex: Female

DRUGS (2)
  1. ALLOPURINOL [Suspect]
     Indication: GOUT
     Dosage: UNK
  2. COLCHICINE [Suspect]
     Indication: GOUT
     Dosage: UNK

REACTIONS (1)
  - PEMPHIGOID [None]
